FAERS Safety Report 4381008-1 (Version None)
Quarter: 2004Q2

REPORT INFORMATION
  Report Type: 
  Country: None (occurrence: None)
  Receive Date: 20040617
  Receipt Date: 20040617
  Transmission Date: 20050107
  Serious: Yes (Other)
  Sender: FDA-Public Use
  Company Number: None

PATIENT
  Age: 54 Year
  Sex: Female

DRUGS (2)
  1. VERAPAMIL [Suspect]
     Dosage: SR
  2. VERAPAMIL [Suspect]
     Dosage: SR

REACTIONS (1)
  - MEDICATION ERROR [None]
